FAERS Safety Report 5743817-3 (Version None)
Quarter: 2008Q2

REPORT INFORMATION
  Report Type: 
  Country: None (occurrence: None)
  Receive Date: 20080519
  Receipt Date: 20080519
  Transmission Date: 20081010
  Serious: Yes (Other)
  Sender: FDA-Public Use
  Company Number: None

PATIENT
  Sex: Male
  Weight: 80.7403 kg

DRUGS (1)
  1. VIAGRA [Suspect]
     Indication: ERECTILE DYSFUNCTION
     Dosage: 50MG OCCASIONAL PO
     Route: 048
     Dates: start: 20070906, end: 20080306

REACTIONS (1)
  - OPTIC ISCHAEMIC NEUROPATHY [None]
